FAERS Safety Report 7773776-3 (Version None)
Quarter: 2011Q3

REPORT INFORMATION
  Report Type: 
  Country: None (occurrence: None)
  Receive Date: 20110923
  Receipt Date: 20110912
  Transmission Date: 20111222
  Serious: Yes (Death, Other)
  Sender: FDA-Public Use
  Company Number: US-ELI_LILLY_AND_COMPANY-US200910007075

PATIENT
  Sex: Female

DRUGS (19)
  1. FORTEO [Suspect]
     Dosage: 20 UG, QD
     Route: 058
  2. MICRO-K [Concomitant]
  3. DESYREL [Concomitant]
  4. XANAX [Concomitant]
  5. VITAMIN TAB [Concomitant]
  6. PRAVACHOL [Concomitant]
  7. FORTEO [Suspect]
     Indication: BONE DISORDER
     Dosage: 20 UG, QD
     Route: 058
  8. CARAFATE [Concomitant]
  9. LOPRESSOR [Concomitant]
  10. FERROUS SULFATE TAB [Concomitant]
  11. CELEXA [Concomitant]
  12. ASPIRIN [Concomitant]
     Dosage: 81 MG, QD
  13. FORTEO [Suspect]
     Dosage: 20 UG, QOD
     Route: 058
  14. HYDROCHLOROTHIAZIDE [Concomitant]
  15. HYDROCORT [Concomitant]
  16. SYNTHROID [Concomitant]
  17. PLAVIX [Concomitant]
  18. FLORINEF [Concomitant]
  19. TRAMADOL HCL [Concomitant]

REACTIONS (7)
  - MYALGIA [None]
  - MUSCLE SPASMS [None]
  - GASTROINTESTINAL HAEMORRHAGE [None]
  - MYOCARDIAL INFARCTION [None]
  - ARTHRALGIA [None]
  - MEDICATION ERROR [None]
  - LIMB DISCOMFORT [None]
